FAERS Safety Report 19874306 (Version 1)
Quarter: 2021Q3

REPORT INFORMATION
  Report Type: Spontaneous
  Country: CA (occurrence: CA)
  Receive Date: 20210923
  Receipt Date: 20210923
  Transmission Date: 20211014
  Serious: Yes (Other)
  Sender: FDA-Public Use
  Company Number: CA-TEVA-2021-CA-1956366

PATIENT
  Age: 59 Year
  Sex: Male

DRUGS (4)
  1. RIVAROXABAN [Suspect]
     Active Substance: RIVAROXABAN
     Route: 048
  2. DILTIAZEM. [Suspect]
     Active Substance: DILTIAZEM
  3. DILTIAZEM. [Suspect]
     Active Substance: DILTIAZEM
     Dosage: 60 MILLIGRAM DAILY;
  4. EDECRIN [Suspect]
     Active Substance: ETHACRYNIC ACID
     Dosage: 300 MILLIGRAM DAILY;

REACTIONS (3)
  - Polyuria [Unknown]
  - Epistaxis [Unknown]
  - Acute kidney injury [Unknown]
